FAERS Safety Report 6063762-6 (Version None)
Quarter: 2009Q1

REPORT INFORMATION
  Report Type: 
  Country: None (occurrence: None)
  Receive Date: 20090130
  Receipt Date: 20090116
  Transmission Date: 20090719
  Serious: Yes (Death)
  Sender: FDA-Public Use
  Company Number: 2009S1000049

PATIENT
  Age: 37 Year
  Sex: Male

DRUGS (13)
  1. METHADONE HCL [Suspect]
     Dosage: PO
     Route: 048
     Dates: end: 20070101
  2. BUPROPION HCL [Suspect]
     Dosage: PO
     Route: 048
     Dates: end: 20070101
  3. QUETIAPINE FUMARATE [Suspect]
     Dosage: PO
     Route: 048
     Dates: end: 20070101
  4. BACLOFEN [Suspect]
     Dosage: PO
     Route: 048
     Dates: end: 20070101
  5. PROMETHAZINE [Suspect]
     Dosage: PO
     Route: 048
     Dates: end: 20070101
  6. DULOXETINE [Suspect]
     Dosage: PO
     Route: 048
     Dates: end: 20070101
  7. CLONAZEPAM [Suspect]
     Dosage: PO
     Route: 048
     Dates: end: 20070101
  8. ZOLPIDEM [Suspect]
     Dosage: PO
     Route: 048
     Dates: end: 20070101
  9. LITHIUM CARBONATE [Suspect]
     Dosage: PO
     Route: 048
     Dates: end: 20070101
  10. LEVOTHYROXINE SODIUM [Suspect]
     Dosage: PO
     Route: 048
     Dates: end: 20070101
  11. LAMOTRIGINE [Suspect]
     Dosage: PO
     Route: 048
     Dates: end: 20070101
  12. EFAVIRENZ [Suspect]
     Dosage: PO
     Route: 048
     Dates: end: 20070101
  13. EMTRICITABINE/TENOFOVIR [Suspect]
     Dosage: PO
     Route: 048
     Dates: end: 20070101

REACTIONS (4)
  - CARDIAC ARREST [None]
  - COMPLETED SUICIDE [None]
  - POISONING [None]
  - RESPIRATORY ARREST [None]
